FAERS Safety Report 9778698 (Version 1)
Quarter: 2013Q4

REPORT INFORMATION
  Report Type: Spontaneous
  Country: FR (occurrence: None)
  Receive Date: 20131219
  Receipt Date: 20131219
  Transmission Date: 20140711
  Serious: Yes (Death)
  Sender: FDA-Public Use
  Company Number: SYM-2013-14025

PATIENT
  Age: 55 Year
  Sex: Male

DRUGS (12)
  1. MONO-TILDIEM [Suspect]
     Indication: PRODUCT USED FOR UNKNOWN INDICATION
     Route: 048
     Dates: start: 2013, end: 20130621
  2. FLECAINE [Suspect]
     Indication: PRODUCT USED FOR UNKNOWN INDICATION
     Dosage: 200 MG, ORAL
     Route: 048
     Dates: start: 20130614, end: 20130621
  3. SPIRIVA (TIOTROPIUM BROMIDE) (TIOTROPIUM BROMIDE) [Concomitant]
  4. SYMBICORT [Concomitant]
  5. CORVASAL (MOLSIDOMINE) [Concomitant]
  6. ALDACTONE (SPIRONOLACTONE) [Concomitant]
  7. EUPANTOL (PANTOPRAZOLE SODIUM SESQUIHYDRATE) [Concomitant]
  8. LANTUS (INSULIN GLARGINE) [Concomitant]
  9. GLUCOPHAGE (METFORMIN HYDROCHLORIDE) [Concomitant]
  10. XARELTO (RIVAROXABAN) [Concomitant]
  11. LEXOMIL (BROMAZEPAM) [Concomitant]
  12. CORDARONE (AMIODARONE HYDROCHLORIDE)/ORAL/TABLET/200 MILLIGRAMS(S) [Concomitant]

REACTIONS (5)
  - Bradycardia [None]
  - Cardiac arrest [None]
  - Shock [None]
  - Electrocardiogram QRS complex prolonged [None]
  - Cardiac arrest [None]
